FAERS Safety Report 4460694-1 (Version None)
Quarter: 2004Q3

REPORT INFORMATION
  Report Type: 
  Country: None (occurrence: None)
  Receive Date: 20040928
  Receipt Date: 20040719
  Transmission Date: 20050211
  Serious: Yes (Other)
  Sender: FDA-Public Use
  Company Number: US-GLAXOSMITHKLINE-A0518815A

PATIENT
  Age: 63 Year
  Sex: Female

DRUGS (8)
  1. ADVAIR DISKUS 100/50 [Suspect]
     Dosage: 1PUFF TWICE PER DAY
     Route: 055
     Dates: start: 20020701
  2. PREDNISONE [Concomitant]
  3. SINGULAIR [Concomitant]
  4. PULMICORT [Concomitant]
  5. CARDIZEM [Concomitant]
  6. ACTONEL [Concomitant]
  7. ZOCOR [Concomitant]
  8. UNSPECIFIED MEDICATION [Concomitant]

REACTIONS (3)
  - ASTHMA [None]
  - DYSPNOEA [None]
  - MEDICATION ERROR [None]
